FAERS Safety Report 7651541-5 (Version None)
Quarter: 2011Q3

REPORT INFORMATION
  Report Type: 
  Country: None (occurrence: None)
  Receive Date: 20110802
  Receipt Date: 20110729
  Transmission Date: 20111222
  Serious: Yes (Death, Other)
  Sender: FDA-Public Use
  Company Number: PHHY2011NL68535

PATIENT
  Age: 11 Year
  Sex: Male

DRUGS (4)
  1. BASILIXIMAB [Suspect]
     Indication: RENAL TRANSPLANT
     Dosage: UNK
  2. CYCLOSPORINE [Suspect]
     Indication: RENAL TRANSPLANT
     Dosage: UNK
  3. PREDNISOLONE [Suspect]
     Indication: RENAL TRANSPLANT
     Dosage: UNK
  4. MYCOPHENOLATE MOFETIL [Suspect]
     Indication: RENAL TRANSPLANT
     Dosage: UNK

REACTIONS (9)
  - TACHYPNOEA [None]
  - PULMONARY EMBOLISM [None]
  - HYPOXIA [None]
  - PULMONARY HYPERTENSION [None]
  - PULMONARY VENO-OCCLUSIVE DISEASE [None]
  - HYPERHOMOCYSTEINAEMIA [None]
  - FATIGUE [None]
  - CARDIOPULMONARY FAILURE [None]
  - ENDOTHELIAL DYSFUNCTION [None]
